FAERS Safety Report 15518116 (Version 1)
Quarter: 2018Q4

REPORT INFORMATION
  Report Type: Spontaneous
  Country: US (occurrence: US)
  Receive Date: 20181012
  Receipt Date: 20181012
  Transmission Date: 20190205
  Serious: Yes (Other)
  Sender: FDA-Public Use
  Company Number: None

PATIENT
  Age: 73 Year
  Sex: Male
  Weight: 83.25 kg

DRUGS (1)
  1. PROHANCE [Suspect]
     Active Substance: GADOTERIDOL
     Indication: PROSTATE CANCER
     Dosage: ?          OTHER FREQUENCY:ONE TIME;?
     Route: 040
     Dates: start: 20181012, end: 20181012

REACTIONS (4)
  - Pruritus [None]
  - Flushing [None]
  - Contrast media reaction [None]
  - Urticaria [None]

NARRATIVE: CASE EVENT DATE: 20181012
